FAERS Safety Report 7597148-X (Version None)
Quarter: 2011Q3

REPORT INFORMATION
  Report Type: 
  Country: None (occurrence: None)
  Receive Date: 20110708
  Receipt Date: 20100802
  Transmission Date: 20111222
  Serious: Yes (Other)
  Sender: FDA-Public Use
  Company Number: US-GLAXOSMITHKLINE-A0856348A

PATIENT
  Age: 62 Year
  Sex: Female

DRUGS (4)
  1. BENAZEPRIL HYDROCHLORIDE [Concomitant]
  2. FLONASE [Concomitant]
  3. FLOVENT [Suspect]
     Indication: ASTHMA
     Dosage: 1PUFF TWICE PER DAY
     Route: 055
     Dates: start: 20080101
  4. NORVASC [Concomitant]

REACTIONS (4)
  - WHEEZING [None]
  - ASTHMA [None]
  - PRODUCT QUALITY ISSUE [None]
  - DYSPNOEA [None]
